FAERS Safety Report 8649975 (Version 3)
Quarter: 2012Q4

REPORT INFORMATION
  Report Type: 
  Country: US (occurrence: US)
  Receive Date: 20120705
  Receipt Date: 20121218
  Transmission Date: 20130627
  Serious: Yes (Hospitalization, Other)
  Sender: FDA-Public Use
  Company Number: US-GENZYME-THYM-1003304

PATIENT
  Age: 63 None
  Sex: Male
  Weight: 120.2 kg

DRUGS (19)
  1. THYMOGLOBULIN [Suspect]
     Indication: PROPHYLAXIS AGAINST TRANSPLANT REJECTION
     Dosage: UNK
     Route: 065
     Dates: start: 20111213, end: 20111220
  2. VALGANCICLOVIR [Concomitant]
     Indication: PRODUCT USED FOR UNKNOWN INDICATION
     Dosage: 450 mg, qd
     Route: 048
     Dates: start: 20120521
  3. VALGANCICLOVIR [Concomitant]
     Dosage: 225 mg, qd
     Route: 048
  4. FLOMAX [Concomitant]
     Indication: PRODUCT USED FOR UNKNOWN INDICATION
     Dosage: 0.4 mg, qd
     Route: 048
     Dates: start: 20120521
  5. TACROLIMUS [Concomitant]
     Indication: PRODUCT USED FOR UNKNOWN INDICATION
     Dosage: 1 mg, bid
     Route: 048
  6. ZOCOR [Concomitant]
     Indication: PRODUCT USED FOR UNKNOWN INDICATION
     Dosage: 20 mg, qd
     Route: 048
  7. PREDNISONE [Concomitant]
     Indication: PRODUCT USED FOR UNKNOWN INDICATION
     Dosage: 5 mg, qd
     Route: 048
     Dates: start: 20120521
  8. CELLCEPT [Concomitant]
     Indication: PRODUCT USED FOR UNKNOWN INDICATION
     Dosage: 500 mg, bid
     Route: 048
     Dates: start: 20120521
  9. NORVASC [Concomitant]
     Indication: PRODUCT USED FOR UNKNOWN INDICATION
     Dosage: 5 mg, qd
     Route: 048
  10. ATENOLOL [Concomitant]
     Indication: HYPERTENSION
     Dosage: 100 mg, qd
     Route: 048
  11. ATENOLOL [Concomitant]
     Indication: HYPERLIPIDAEMIA
  12. ATENOLOL [Concomitant]
     Indication: CORONARY ARTERY DISEASE
  13. VITAMIN D3 [Concomitant]
     Indication: PRODUCT USED FOR UNKNOWN INDICATION
     Dosage: 2000 UNK, qd
     Route: 048
  14. VITAMIN D3 [Concomitant]
     Dosage: 1000 UNK, qd
     Route: 048
  15. FOLIC ACID [Concomitant]
     Indication: PRODUCT USED FOR UNKNOWN INDICATION
     Dosage: 5 mg, qd
     Route: 048
  16. VALACICLOVIR [Concomitant]
     Indication: PROPHYLAXIS AGAINST TRANSPLANT REJECTION
     Dosage: UNK
     Route: 065
  17. LANTUS [Concomitant]
     Indication: TYPE 2 DIABETES MELLITUS
     Dosage: 100 ml, UNK
     Route: 058
  18. ALBUTEROL [Concomitant]
     Indication: DYSPNOEA
     Dosage: 0.5 ml, qid
     Route: 045
     Dates: start: 20120521
  19. ALBUTEROL [Concomitant]
     Indication: PRODUCT USED FOR UNKNOWN INDICATION

REACTIONS (25)
  - Anaemia [Not Recovered/Not Resolved]
  - Cough [Recovered/Resolved]
  - Night sweats [Recovered/Resolved]
  - Renal impairment [Recovered/Resolved]
  - Hypoxia [Recovered/Resolved]
  - Respiratory alkalosis [Recovered/Resolved]
  - Diastolic dysfunction [Not Recovered/Not Resolved]
  - Cerebral atrophy [Recovered/Resolved]
  - Cerebral small vessel ischaemic disease [Recovered/Resolved]
  - Back pain [Recovered/Resolved]
  - Leukocytosis [Recovered/Resolved]
  - Back pain [Recovered/Resolved]
  - Hypophagia [Recovered/Resolved]
  - Feeling abnormal [Recovered/Resolved]
  - Respiratory rate increased [Recovered/Resolved]
  - Abdominal pain [Recovered/Resolved]
  - Vomiting [Recovered/Resolved]
  - Dyspnoea [Recovered/Resolved]
  - Diarrhoea [Recovered/Resolved]
  - Pyrexia [Recovered/Resolved]
  - Chills [Recovered/Resolved]
  - Nausea [Recovered/Resolved]
  - Leukopenia [Not Recovered/Not Resolved]
  - Clostridium difficile colitis [Recovered/Resolved]
  - Pneumonia [Recovered/Resolved]
